FAERS Safety Report 6933134-8 (Version None)
Quarter: 2010Q3

REPORT INFORMATION
  Report Type: 
  Country: None (occurrence: None)
  Receive Date: 20100820
  Receipt Date: 20100810
  Transmission Date: 20110219
  Serious: Yes (Hospitalization)
  Sender: FDA-Public Use
  Company Number: BE-AMGEN-QUU430227

PATIENT
  Age: 82 Year
  Sex: Female
  Weight: 82 kg

DRUGS (5)
  1. ENBREL [Suspect]
     Indication: RHEUMATOID ARTHRITIS
     Route: 058
     Dates: start: 20100225, end: 20100408
  2. CALCIUM WITH VITAMIN D [Concomitant]
  3. PREDNISOLONE [Concomitant]
     Route: 048
  4. FUROSEMIDE [Concomitant]
  5. ACETAMINOPHEN [Concomitant]

REACTIONS (4)
  - ESCHERICHIA INFECTION [None]
  - RENAL FAILURE ACUTE [None]
  - SEPTIC SHOCK [None]
  - UROSEPSIS [None]
